FAERS Safety Report 23779518 (Version 1)
Quarter: 2024Q2

REPORT INFORMATION
  Report Type: Spontaneous
  Country: US (occurrence: US)
  Receive Date: 20240424
  Receipt Date: 20240424
  Transmission Date: 20240716
  Serious: No
  Sender: FDA-Public Use
  Company Number: US-SA-SAC20240422000932

PATIENT
  Sex: Female
  Weight: 53 kg

DRUGS (5)
  1. DUPIXENT [Suspect]
     Active Substance: DUPILUMAB
     Indication: Dermatitis allergic
     Dosage: 300 MG, QOW
     Route: 058
  2. ATORVASTATIN CALCIUM [Concomitant]
     Active Substance: ATORVASTATIN CALCIUM
  3. CELEBREX [Concomitant]
     Active Substance: CELECOXIB
  4. ADBRY [Concomitant]
     Active Substance: TRALOKINUMAB-LDRM
  5. LYRICA [Concomitant]
     Active Substance: PREGABALIN

REACTIONS (1)
  - Drug ineffective [Unknown]
